FAERS Safety Report 17971235 (Version 2)
Quarter: 2020Q3

REPORT INFORMATION
  Report Type: Report from Study
  Country: BR (occurrence: BR)
  Receive Date: 20200701
  Receipt Date: 20200709
  Transmission Date: 20201103
  Serious: Yes (Other)
  Sender: FDA-Public Use
  Company Number: NVSC2020BR185282

PATIENT
  Age: 40 Year
  Sex: Male

DRUGS (3)
  1. DAIVOBET [Suspect]
     Active Substance: BETAMETHASONE DIPROPIONATE\CALCIPOTRIENE
     Indication: PRODUCT USED FOR UNKNOWN INDICATION
     Dosage: UNK
     Route: 061
  2. COSENTYX [Suspect]
     Active Substance: SECUKINUMAB
     Indication: PSORIATIC ARTHROPATHY
     Dosage: 300 MG
     Route: 065
     Dates: start: 20200311
  3. COSENTYX [Suspect]
     Active Substance: SECUKINUMAB
     Dosage: 300 MG
     Route: 065
     Dates: start: 20200311

REACTIONS (28)
  - Arthralgia [Recovering/Resolving]
  - Genital erythema [Recovered/Resolved]
  - Skin laceration [Recovered/Resolved]
  - Pain [Recovering/Resolving]
  - Pain in extremity [Recovering/Resolving]
  - Immune system disorder [Not Recovered/Not Resolved]
  - Skin atrophy [Recovered/Resolved]
  - Limb injury [Recovering/Resolving]
  - Burning sensation [Recovered/Resolved]
  - Pruritus [Recovered/Resolved]
  - Nail discolouration [Unknown]
  - Scab [Unknown]
  - Spinal pain [Not Recovered/Not Resolved]
  - Anxiety [Unknown]
  - Skin exfoliation [Recovering/Resolving]
  - Drug ineffective [Recovering/Resolving]
  - Back pain [Recovering/Resolving]
  - Pruritus [Recovered/Resolved]
  - Alopecia [Unknown]
  - Oral mucosal erythema [Recovered/Resolved]
  - Genital dysaesthesia [Recovered/Resolved]
  - Genital erythema [Recovered/Resolved]
  - Swelling [Recovered/Resolved]
  - Sensitive skin [Recovered/Resolved]
  - Burning sensation [Recovered/Resolved]
  - Erythema [Recovered/Resolved]
  - Stress [Unknown]
  - Psoriasis [Recovering/Resolving]

NARRATIVE: CASE EVENT DATE: 20200408
